FAERS Safety Report 6451080-3 (Version None)
Quarter: 2009Q4

REPORT INFORMATION
  Report Type: 
  Country: None (occurrence: None)
  Receive Date: 20091123
  Receipt Date: 20091112
  Transmission Date: 20100525
  Serious: Yes (Other)
  Sender: FDA-Public Use
  Company Number: US-PFIZER INC-2009298092

PATIENT
  Age: 65 Year
  Sex: Male
  Weight: 86.168 kg

DRUGS (10)
  1. XALATAN [Suspect]
     Indication: GLAUCOMA
     Dosage: UNK
  2. LUMIGAN [Suspect]
  3. ACETYLSALICYLIC ACID [Concomitant]
     Dosage: UNK
  4. HYDROCHLOROTHIAZIDE [Concomitant]
     Dosage: UNK
  5. LISINOPRIL [Concomitant]
     Dosage: UNK
  6. SIMVASTATIN [Concomitant]
     Dosage: UNK
  7. CIALIS [Concomitant]
     Dosage: UNK
  8. TIMOLOL [Concomitant]
     Indication: GLAUCOMA
     Dosage: UNK
  9. VITAMINS [Concomitant]
     Dosage: UNK
  10. WARFARIN [Concomitant]
     Dosage: UNK

REACTIONS (4)
  - EYE PRURITUS [None]
  - FOREIGN BODY SENSATION IN EYES [None]
  - HEART VALVE REPLACEMENT [None]
  - PROSTATE CANCER [None]
